FAERS Safety Report 15953917 (Version 2)
Quarter: 2019Q2

REPORT INFORMATION
  Report Type: Spontaneous
  Country: US (occurrence: US)
  Receive Date: 20190213
  Receipt Date: 20190401
  Transmission Date: 20190711
  Serious: No
  Sender: FDA-Public Use
  Company Number: US-DRREDDYS-USA/USA/19/0107616

PATIENT
  Age: 23 Year
  Sex: Female

DRUGS (3)
  1. ETHINYLESTRADIOL 0.035 G, NORETHINDRONE 1MG [Interacting]
     Active Substance: ETHINYL ESTRADIOL\NORETHINDRONE
     Dosage: NORETHINDRONE  1 MG
     Route: 048
  2. LAMOTRIGINE TABLETS [Suspect]
     Active Substance: LAMOTRIGINE
     Indication: BIPOLAR DISORDER
     Route: 065
  3. ETHINYLESTRADIOL 0.035 G, NORETHINDRONE 1MG [Interacting]
     Active Substance: ETHINYL ESTRADIOL\NORETHINDRONE
     Indication: CONTRACEPTION
     Dosage: ETHINYLESTRADIOL  0.035 MG
     Route: 048

REACTIONS (2)
  - Drug level decreased [Recovered/Resolved]
  - Drug interaction [Recovered/Resolved]
